FAERS Safety Report 17420001 (Version 7)
Quarter: 2020Q4

REPORT INFORMATION
  Report Type: Spontaneous
  Country: US (occurrence: US)
  Receive Date: 20200214
  Receipt Date: 20201002
  Transmission Date: 20210113
  Serious: No
  Sender: FDA-Public Use
  Company Number: US-PFIZER INC-2020064540

PATIENT
  Age: 71 Year
  Sex: Female

DRUGS (2)
  1. IBRANCE [Suspect]
     Active Substance: PALBOCICLIB
     Indication: BREAST CANCER FEMALE
     Dosage: 125 MG, UNK
  2. IBRANCE [Suspect]
     Active Substance: PALBOCICLIB
     Dosage: 75 MG, UNK

REACTIONS (6)
  - Loss of personal independence in daily activities [Unknown]
  - Suspected COVID-19 [Unknown]
  - Tooth disorder [Unknown]
  - Neoplasm progression [Unknown]
  - Gait disturbance [Unknown]
  - White blood cell count decreased [Unknown]
